FAERS Safety Report 14392150 (Version 4)
Quarter: 2018Q2

REPORT INFORMATION
  Report Type: Spontaneous
  Country: PT (occurrence: PT)
  Receive Date: 20180116
  Receipt Date: 20180502
  Transmission Date: 20180711
  Serious: Yes (Other)
  Sender: FDA-Public Use
  Company Number: PT-ROCHE-2052409

PATIENT
  Sex: Female
  Weight: 60 kg

DRUGS (10)
  1. BOSENTAN. [Concomitant]
     Active Substance: BOSENTAN
     Indication: SYSTEMIC SCLERODERMA
     Route: 048
     Dates: start: 2011
  2. PANTOPRAZOL [Concomitant]
     Active Substance: PANTOPRAZOLE SODIUM
     Indication: SYSTEMIC SCLERODERMA
     Route: 048
     Dates: start: 2012
  3. MYCOPHENOLATE MOFETIL. [Suspect]
     Active Substance: MYCOPHENOLATE MOFETIL
     Indication: INTERSTITIAL LUNG DISEASE
  4. TOCILIZUMAB. [Suspect]
     Active Substance: TOCILIZUMAB
     Indication: SYSTEMIC SCLERODERMA
     Route: 058
     Dates: start: 20171013, end: 20171208
  5. RANITIDINE. [Concomitant]
     Active Substance: RANITIDINE
     Indication: SYSTEMIC SCLERODERMA
     Route: 048
     Dates: start: 2012
  6. SILDENAFIL. [Concomitant]
     Active Substance: SILDENAFIL
     Indication: SYSTEMIC SCLERODERMA
     Route: 048
     Dates: start: 2015
  7. MYCOPHENOLATE MOFETIL. [Suspect]
     Active Substance: MYCOPHENOLATE MOFETIL
     Indication: SYSTEMIC SCLERODERMA
     Route: 048
     Dates: start: 20120211, end: 20171012
  8. DOMPERIDONE [Concomitant]
     Active Substance: DOMPERIDONE
     Indication: SYSTEMIC SCLERODERMA
     Route: 048
     Dates: start: 2012
  9. TOCILIZUMAB. [Suspect]
     Active Substance: TOCILIZUMAB
     Indication: INTERSTITIAL LUNG DISEASE
  10. AMLODIPINE/PERINDOPRIL [Concomitant]
     Indication: HYPERTENSION
     Dosage: 5/10MG
     Route: 048
     Dates: start: 2011

REACTIONS (6)
  - Interstitial lung disease [Unknown]
  - Off label use [Unknown]
  - Intentional product use issue [Unknown]
  - Pulmonary function test abnormal [Unknown]
  - Arthritis [Unknown]
  - Hypoxia [Unknown]

NARRATIVE: CASE EVENT DATE: 20171215
